FAERS Safety Report 7414216-3 (Version None)
Quarter: 2011Q1

REPORT INFORMATION
  Report Type: 
  Country: None (occurrence: None)
  Receive Date: 20110302
  Receipt Date: 20101228
  Transmission Date: 20110831
  Serious: No
  Sender: FDA-Public Use
  Company Number: 024633

PATIENT
  Sex: Male

DRUGS (1)
  1. CIMZIA [Suspect]
     Dosage: (LYO SUBCUTANEOUS)
     Route: 058
     Dates: start: 20090301

REACTIONS (1)
  - NASOPHARYNGITIS [None]
